FAERS Safety Report 6286318-9 (Version None)
Quarter: 2009Q3

REPORT INFORMATION
  Report Type: 
  Country: None (occurrence: None)
  Receive Date: 20090727
  Receipt Date: 20090727
  Transmission Date: 20100115
  Serious: Yes (Disabling)
  Sender: FDA-Public Use
  Company Number: None

PATIENT
  Age: 57 Year
  Sex: Female

DRUGS (1)
  1. ZICAM 2 TIMES DALY NOSE SWABS [Suspect]
     Dates: start: 20081215, end: 20081230

REACTIONS (1)
  - ANOSMIA [None]
